FAERS Safety Report 16379602 (Version 1)
Quarter: 2019Q2

REPORT INFORMATION
  Report Type: Spontaneous
  Country: US (occurrence: US)
  Receive Date: 20190423
  Receipt Date: 20190423
  Transmission Date: 20190711
  Serious: Yes (Death)
  Sender: FDA-Public Use
  Company Number: None

PATIENT
  Sex: Male
  Weight: 51.53 kg

DRUGS (18)
  1. KETOCONAZOLE. [Concomitant]
     Active Substance: KETOCONAZOLE
  2. PROBIOTIC [Concomitant]
     Active Substance: PROBIOTICS NOS
  3. MARINOL [Concomitant]
     Active Substance: DRONABINOL
  4. MIRTAZAPINE. [Concomitant]
     Active Substance: MIRTAZAPINE
  5. QUESTRAN [Concomitant]
     Active Substance: CHOLESTYRAMINE
  6. DICLOFENAC [Concomitant]
     Active Substance: DICLOFENAC
  7. CHOLESTYRAMINE. [Concomitant]
     Active Substance: CHOLESTYRAMINE
  8. LUPRON DEPOT [Concomitant]
     Active Substance: LEUPROLIDE ACETATE
  9. DICYCLOMINE [Concomitant]
     Active Substance: DICYCLOMINE HYDROCHLORIDE
  10. LOMOTIL [Concomitant]
     Active Substance: ATROPINE SULFATE\DIPHENOXYLATE HYDROCHLORIDE
  11. TRAMADOL. [Concomitant]
     Active Substance: TRAMADOL
  12. ASPIRIN. [Concomitant]
     Active Substance: ASPIRIN
  13. MEGESTROL [Suspect]
     Active Substance: MEGESTROL
     Indication: PROSTATE CANCER
     Route: 048
     Dates: start: 20171101, end: 20190423
  14. XTANDI [Concomitant]
     Active Substance: ENZALUTAMIDE
  15. AMLODIPINE [Concomitant]
     Active Substance: AMLODIPINE BESYLATE
  16. FLOMAX [Concomitant]
     Active Substance: TAMSULOSIN HYDROCHLORIDE
  17. RANITIDINE. [Concomitant]
     Active Substance: RANITIDINE
  18. GLUCOSAMINE [Concomitant]
     Active Substance: GLUCOSAMINE

REACTIONS (1)
  - Death [None]
